FAERS Safety Report 9357481 (Version 2)
Quarter: 2013Q3

REPORT INFORMATION
  Report Type: Report from Study
  Country: BR (occurrence: BR)
  Receive Date: 20130620
  Receipt Date: 20130822
  Transmission Date: 20140515
  Serious: No
  Sender: FDA-Public Use
  Company Number: PHHY2013BR062057

PATIENT
  Age: 77 Year
  Sex: Female

DRUGS (1)
  1. DIOVAN AMLO FIX [Suspect]
     Indication: BLOOD PRESSURE ABNORMAL
     Dosage: 1 DF, (160 MG VALS/ 5 MG AMLO) ONCE A DAY

REACTIONS (2)
  - Local swelling [Recovering/Resolving]
  - Swelling [Recovered/Resolved]
